FAERS Safety Report 5514235-8 (Version None)
Quarter: 2007Q4

REPORT INFORMATION
  Report Type: 
  Country: None (occurrence: None)
  Receive Date: 20071106
  Receipt Date: 20070327
  Transmission Date: 20080405
  Serious: Yes (Other)
  Sender: FDA-Public Use
  Company Number: US200703006583

PATIENT
  Age: 17 Year
  Sex: Male

DRUGS (3)
  1. PROZAC [Suspect]
     Indication: DEPRESSION
     Dosage: 40 MG, ORAL
     Route: 048
  2. BUPROPION HYDROCHLORIDE [Concomitant]
  3. DEXMETHYLPHENIDATE HYDROCHLORIDE (DEXMETHYLPHENIDATE HYDROCHLORIDE) [Concomitant]

REACTIONS (1)
  - GYNAECOMASTIA [None]
